FAERS Safety Report 16314302 (Version 4)
Quarter: 2019Q3

REPORT INFORMATION
  Report Type: Spontaneous
  Country: US (occurrence: US)
  Receive Date: 20190515
  Receipt Date: 20190919
  Transmission Date: 20191004
  Serious: Yes (Death, Hospitalization, Other)
  Sender: FDA-Public Use
  Company Number: US-PFIZER INC-2019203220

PATIENT
  Age: 76 Year
  Sex: Male
  Weight: 68.4 kg

DRUGS (3)
  1. VFEND [Suspect]
     Active Substance: VORICONAZOLE
     Indication: ASPERGILLUS INFECTION
     Dosage: 200 MG, 2X/DAY(200MG TWICE A DAY VIA FEEDING TUBE)
     Dates: start: 2015
  2. VFEND [Suspect]
     Active Substance: VORICONAZOLE
     Dosage: UNK
     Dates: end: 20190804
  3. VFEND [Suspect]
     Active Substance: VORICONAZOLE
     Dosage: 200 MG, 2X/DAY
     Dates: start: 2016

REACTIONS (5)
  - Pneumonia aspiration [Fatal]
  - Wrong technique in product usage process [Unknown]
  - Drug ineffective [Unknown]
  - Dementia [Not Recovered/Not Resolved]
  - Off label use [Unknown]

NARRATIVE: CASE EVENT DATE: 2015
